FAERS Safety Report 6727307-7 (Version None)
Quarter: 2010Q2

REPORT INFORMATION
  Report Type: 
  Country: None (occurrence: None)
  Receive Date: 20100517
  Receipt Date: 20100512
  Transmission Date: 20101027
  Serious: Yes (Other)
  Sender: FDA-Public Use
  Company Number: JP-SANOFI-AVENTIS-2010SA013352

PATIENT
  Age: 58 Year
  Sex: Female
  Weight: 58 kg

DRUGS (7)
  1. CLEXANE [Suspect]
     Dates: start: 20100216, end: 20100221
  2. PANSPORIN [Concomitant]
     Route: 042
     Dates: start: 20100215, end: 20100219
  3. MEIACT [Concomitant]
     Dosage: DOSE AS USED: 2A
     Route: 048
     Dates: start: 20100210, end: 20100226
  4. FERROMIA [Concomitant]
     Indication: ANAEMIA
     Route: 048
     Dates: start: 20100216, end: 20100323
  5. IRZAIM [Concomitant]
     Indication: INFLAMMATION
     Route: 048
     Dates: start: 20100216, end: 20100301
  6. MUCOSTA [Concomitant]
     Indication: GASTRITIS
     Route: 048
     Dates: start: 20100216, end: 20100301
  7. LOXONIN [Concomitant]
     Indication: ANALGESIC THERAPY
     Route: 048
     Dates: start: 20100216, end: 20100301

REACTIONS (1)
  - HEPATIC FUNCTION ABNORMAL [None]
